FAERS Safety Report 19421661 (Version 1)
Quarter: 2021Q2

REPORT INFORMATION
  Report Type: Spontaneous
  Country: US (occurrence: US)
  Receive Date: 20210615
  Receipt Date: 20210615
  Transmission Date: 20210717
  Serious: No
  Sender: FDA-Public Use
  Company Number: None

PATIENT
  Age: 68 Year
  Sex: Male
  Weight: 114.75 kg

DRUGS (3)
  1. ESCITALOPRAM 20 MG [Suspect]
     Active Substance: ESCITALOPRAM OXALATE
     Indication: DEPRESSION
     Dosage: ?          QUANTITY:90 TABLET(S);?
     Route: 048
     Dates: end: 20210402
  2. METFORMIN [Concomitant]
     Active Substance: METFORMIN HYDROCHLORIDE
  3. LISINOPRIL 30MG [Concomitant]
     Active Substance: LISINOPRIL

REACTIONS (2)
  - Tremor [None]
  - Fine motor skill dysfunction [None]

NARRATIVE: CASE EVENT DATE: 20210402
